FAERS Safety Report 8608639-4 (Version None)
Quarter: 2012Q3

REPORT INFORMATION
  Report Type: 
  Country: None (occurrence: None)
  Receive Date: 20120809
  Receipt Date: 20120809
  Transmission Date: 20120928
  Serious: Yes (Other)
  Sender: FDA-Public Use
  Company Number: None

PATIENT
  Age: 55 Year
  Sex: Female
  Weight: 68.0396 kg

DRUGS (1)
  1. PRAVASTATIN SODIUM [Suspect]
     Indication: BLOOD CHOLESTEROL INCREASED
     Dosage: 20 MG 1 X DAILY PO
     Route: 048
     Dates: start: 20070315, end: 20120807

REACTIONS (6)
  - DEPRESSED LEVEL OF CONSCIOUSNESS [None]
  - MYALGIA [None]
  - FATIGUE [None]
  - DYSPEPSIA [None]
  - TERMINAL INSOMNIA [None]
  - SLEEP DISORDER [None]
